FAERS Safety Report 17038433 (Version 1)
Quarter: 2019Q4

REPORT INFORMATION
  Report Type: Spontaneous
  Country: DE (occurrence: DE)
  Receive Date: 20191115
  Receipt Date: 20191115
  Transmission Date: 20200122
  Serious: Yes (Other)
  Sender: FDA-Public Use
  Company Number: DE-ASTRAZENECA-2019SF61460

PATIENT
  Age: 80 Year
  Sex: Female

DRUGS (3)
  1. ERLOTINIB [Concomitant]
     Active Substance: ERLOTINIB
     Dosage: 150 MG
     Dates: start: 201902
  2. ERLOTINIB [Concomitant]
     Active Substance: ERLOTINIB
     Dosage: 100 MG
     Dates: start: 201904
  3. OSIMERTINIB. [Suspect]
     Active Substance: OSIMERTINIB
     Indication: ADENOCARCINOMA
     Route: 048
     Dates: start: 201809

REACTIONS (10)
  - Metastases to lymph nodes [Unknown]
  - Interstitial lung disease [Unknown]
  - Pleural effusion [Recovered/Resolved]
  - Dyspnoea exertional [Unknown]
  - Lung infiltration [Unknown]
  - Metastases to lung [Unknown]
  - Cough [Unknown]
  - Tachypnoea [Unknown]
  - Pulmonary mass [Recovered/Resolved]
  - Dyspnoea [Not Recovered/Not Resolved]

NARRATIVE: CASE EVENT DATE: 201809
